FAERS Safety Report 4277378-5 (Version None)
Quarter: 2004Q1

REPORT INFORMATION
  Report Type: 
  Country: None (occurrence: None)
  Receive Date: 20040121
  Receipt Date: 20040121
  Transmission Date: 20041129
  Serious: No
  Sender: FDA-Public Use
  Company Number: None

PATIENT
  Sex: Male
  Weight: 94.3482 kg

DRUGS (11)
  1. ZOSYN [Suspect]
     Indication: OSTEOMYELITIS ACUTE
     Dosage: 4.5 GM EVERY 8 HO INTRAVENOUS
     Route: 042
     Dates: start: 20040110, end: 20040115
  2. CHLORASEPTIC LOGENZE [Concomitant]
  3. TRAZODONE [Concomitant]
  4. VICODIN [Concomitant]
  5. PROCARDIA XL [Concomitant]
  6. LISINOPRIL [Concomitant]
  7. ACTOS [Concomitant]
  8. GLUCOVANCE [Concomitant]
  9. PLAVIX [Concomitant]
  10. BETADINE [Concomitant]
  11. VITAMIN E [Concomitant]

REACTIONS (1)
  - RASH [None]
